FAERS Safety Report 6408432-7 (Version None)
Quarter: 2009Q4

REPORT INFORMATION
  Report Type: 
  Country: None (occurrence: None)
  Receive Date: 20091021
  Receipt Date: 20091012
  Transmission Date: 20100525
  Serious: Yes (Hospitalization)
  Sender: FDA-Public Use
  Company Number: DK-BAYER-200935496GPV

PATIENT
  Age: 36 Year
  Sex: Female

DRUGS (2)
  1. MIRENA [Suspect]
     Indication: DRUG USE FOR UNKNOWN INDICATION
     Route: 015
     Dates: start: 20080525, end: 20080801
  2. EMPERAL [Concomitant]
     Indication: DEPRESSION

REACTIONS (2)
  - BLOOD PROLACTIN INCREASED [None]
  - DEPRESSION [None]
